FAERS Safety Report 16375124 (Version 4)
Quarter: 2020Q3

REPORT INFORMATION
  Report Type: Report from Study
  Country: DE (occurrence: DE)
  Receive Date: 20190531
  Receipt Date: 20200701
  Transmission Date: 20201102
  Serious: Yes (Hospitalization)
  Sender: FDA-Public Use
  Company Number: DE-ROCHE-2325603

PATIENT
  Age: 40 Year
  Sex: Female
  Weight: 55 kg

DRUGS (8)
  1. OCRELIZUMAB. [Suspect]
     Active Substance: OCRELIZUMAB
     Indication: MULTIPLE SCLEROSIS
     Dosage: 18/JUN/2018, THE PATIENT RECEIVED MOST RECENT DOSE
     Route: 042
     Dates: start: 20180604
  2. RANITIC [Concomitant]
     Active Substance: RANITIDINE HYDROCHLORIDE
     Route: 065
     Dates: start: 20180604
  3. BOTOX [Concomitant]
     Active Substance: ONABOTULINUMTOXINA
     Indication: NEUROGENIC BLADDER
     Dosage: DEFINITION OF THE INTERVAL: AS REQUIRED
     Route: 065
  4. ORTOTON [METHOCARBAMOL] [Concomitant]
     Active Substance: METHOCARBAMOL
     Indication: NECK PAIN
     Route: 048
     Dates: start: 20190523, end: 20190523
  5. DEKRISTOL [Concomitant]
     Active Substance: CHOLECALCIFEROL
     Indication: VITAMIN D DEFICIENCY
     Route: 048
     Dates: start: 20190918
  6. TRAMAL [Concomitant]
     Active Substance: TRAMADOL
     Indication: NECK PAIN
     Route: 048
     Dates: start: 20190523, end: 20190523
  7. FAMPYRA [Concomitant]
     Active Substance: DALFAMPRIDINE
     Indication: MULTIPLE SCLEROSIS
     Dosage: INDICATION: MULTIPLE SCLEROSIS SYMPTOM WALKING ABILITY.
     Route: 048
  8. MACROGOL [Concomitant]
     Active Substance: POLYETHYLENE GLYCOLS
     Indication: ABDOMINAL PAIN
     Dosage: DEFINITION OF THE INTERVAL: AS REQUIRED
     Route: 065
     Dates: start: 20190531, end: 20190531

REACTIONS (1)
  - Bronchitis [Recovered/Resolved]

NARRATIVE: CASE EVENT DATE: 20181106
